FAERS Safety Report 9818177 (Version 2)
Quarter: 2014Q1

REPORT INFORMATION
  Report Type: Spontaneous
  Country: US (occurrence: US)
  Receive Date: 20140115
  Receipt Date: 20140117
  Transmission Date: 20141002
  Serious: Yes (Death, Life-Threatening, Hospitalization, Other)
  Sender: FDA-Public Use
  Company Number: US-009507513-1401USA004817

PATIENT
  Sex: Male
  Weight: 90.7 kg

DRUGS (1)
  1. JANUVIA [Suspect]
     Indication: TYPE 2 DIABETES MELLITUS
     Dosage: 100 MG, QD
     Route: 048
     Dates: start: 20070702, end: 20101028

REACTIONS (30)
  - Adenocarcinoma pancreas [Fatal]
  - Anaemia [Unknown]
  - Stent placement [Unknown]
  - Gastrointestinal haemorrhage [Unknown]
  - Stent placement [Unknown]
  - Sweating fever [Unknown]
  - Abdominal pain [Unknown]
  - Cholangitis [Unknown]
  - Chronic obstructive pulmonary disease [Not Recovered/Not Resolved]
  - Bronchitis chronic [Not Recovered/Not Resolved]
  - Pneumobilia [Unknown]
  - Dyslipidaemia [Unknown]
  - Pancreatic stent placement [Unknown]
  - Hypothyroidism [Unknown]
  - Gastrooesophageal reflux disease [Unknown]
  - Hiatus hernia [Unknown]
  - Sleep apnoea syndrome [Unknown]
  - Erectile dysfunction [Unknown]
  - Glaucoma [Unknown]
  - Fatigue [Unknown]
  - Oesophageal dilatation [Unknown]
  - Jaundice cholestatic [Unknown]
  - Asthma [Unknown]
  - Radiotherapy [Unknown]
  - Device occlusion [Unknown]
  - Lung disorder [Unknown]
  - Gastritis [Unknown]
  - Hiatus hernia [Unknown]
  - Insulin-requiring type 2 diabetes mellitus [Unknown]
  - Diarrhoea [Unknown]
